FAERS Safety Report 6687416-8 (Version None)
Quarter: 2010Q2

REPORT INFORMATION
  Report Type: 
  Country: None (occurrence: None)
  Receive Date: 20100415
  Receipt Date: 20100401
  Transmission Date: 20101027
  Serious: Yes (Other)
  Sender: FDA-Public Use
  Company Number: LV-1181452

PATIENT
  Age: 55 Year
  Sex: Female

DRUGS (5)
  1. MYDRIACYL [Suspect]
     Dosage: OPHTHALMIC
     Route: 047
     Dates: start: 20100330, end: 20100330
  2. THYROZOL (THIAMAZOLE) [Concomitant]
  3. BISOPROLOL FUMARATE [Concomitant]
  4. INDAPAMIDE [Concomitant]
  5. TORASEMID HEXAL PHARMA (TORASEMIDE) [Concomitant]

REACTIONS (6)
  - BLOOD PRESSURE IMMEASURABLE [None]
  - CIRCULATORY COLLAPSE [None]
  - FATIGUE [None]
  - HYPERHIDROSIS [None]
  - LOSS OF CONSCIOUSNESS [None]
  - PALLOR [None]
